FAERS Safety Report 23454926 (Version 2)
Quarter: 2024Q3

REPORT INFORMATION
  Report Type: Spontaneous
  Country: US (occurrence: US)
  Receive Date: 20240130
  Receipt Date: 20240823
  Transmission Date: 20241017
  Serious: No
  Sender: CYCLE PHARMACEUTICALS
  Company Number: US-CYCLE PHARMACEUTICALS LTD-2024-CYC-000014

PATIENT

DRUGS (3)
  1. NITYR [Suspect]
     Active Substance: NITISINONE
     Indication: Tyrosinaemia
     Dosage: 16 MG, QD (8 MG IN AM AND 8 MG IN PM)
     Route: 048
     Dates: start: 20200325
  2. NITYR [Suspect]
     Active Substance: NITISINONE
     Dosage: TAKE FOUR 2 MG TABLETS (8 MG TOTAL) EVERY MORNING AND FOUR 2 MG TABLETS (8 MG TOTAL) EVERY EVENING
     Route: 048
  3. ZYRTEC [Concomitant]
     Active Substance: CETIRIZINE HYDROCHLORIDE
     Indication: Product used for unknown indication
     Dosage: 10 MG
     Route: 065

REACTIONS (2)
  - Incorrect dose administered [Unknown]
  - Inappropriate schedule of product administration [Recovered/Resolved]

NARRATIVE: CASE EVENT DATE: 20240122
